FAERS Safety Report 23082196 (Version 1)
Quarter: 2023Q4

REPORT INFORMATION
  Report Type: Spontaneous
  Country: US (occurrence: US)
  Receive Date: 20231019
  Receipt Date: 20231019
  Transmission Date: 20240110
  Serious: Yes (Life-Threatening, Hospitalization, Other)
  Sender: FDA-Public Use
  Company Number: US-AMAROX PHARMA-HET2023US02942

PATIENT
  Age: 81 Year
  Sex: Female

DRUGS (1)
  1. CLOPIDOGREL [Suspect]
     Active Substance: CLOPIDOGREL BISULFATE
     Indication: Left ventricle outflow tract obstruction
     Dosage: UNK
     Route: 065

REACTIONS (1)
  - Pulmonary alveolar haemorrhage [Recovering/Resolving]
